FAERS Safety Report 25064033 (Version 3)
Quarter: 2025Q2

REPORT INFORMATION
  Report Type: Spontaneous
  Country: JP (occurrence: JP)
  Receive Date: 20250311
  Receipt Date: 20250625
  Transmission Date: 20250717
  Serious: Yes (Death, Hospitalization, Disabling, Other)
  Sender: ROCHE
  Company Number: JP-CHUGAI-2025007110

PATIENT
  Age: 58 Year
  Sex: Male
  Weight: 54 kg

DRUGS (15)
  1. CELLCEPT [Suspect]
     Active Substance: MYCOPHENOLATE MOFETIL
     Indication: Acute graft versus host disease
     Dosage: UNK
     Route: 048
     Dates: start: 20230905, end: 20230926
  2. CELLCEPT [Suspect]
     Active Substance: MYCOPHENOLATE MOFETIL
     Route: 048
     Dates: start: 20230924, end: 20231003
  3. CELLCEPT [Suspect]
     Active Substance: MYCOPHENOLATE MOFETIL
     Route: 048
     Dates: start: 20231004, end: 20231010
  4. PROGRAF [Suspect]
     Active Substance: TACROLIMUS
     Indication: Acute graft versus host disease
     Route: 042
     Dates: start: 20230905
  5. PROGRAF [Suspect]
     Active Substance: TACROLIMUS
     Route: 042
     Dates: start: 20231007, end: 20231016
  6. PROGRAF [Suspect]
     Active Substance: TACROLIMUS
     Route: 042
     Dates: end: 20241014
  7. BUSULFEX [Suspect]
     Active Substance: BUSULFAN
     Indication: Cord blood transplant therapy
     Route: 042
     Dates: start: 20230830, end: 20230902
  8. MELPHALAN [Suspect]
     Active Substance: MELPHALAN
     Indication: Cord blood transplant therapy
     Route: 042
     Dates: start: 20230903, end: 20230904
  9. RUXOLITINIB PHOSPHATE [Concomitant]
     Active Substance: RUXOLITINIB PHOSPHATE
     Indication: Acute graft versus host disease
     Route: 065
  10. PREVYMIS [Concomitant]
     Active Substance: LETERMOVIR
     Route: 048
     Dates: start: 20230906, end: 20230919
  11. DALTEPARIN SODIUM [Concomitant]
     Active Substance: DALTEPARIN SODIUM
     Route: 065
     Dates: start: 20230830, end: 20240111
  12. LANSOPRAZOLE [Concomitant]
     Active Substance: LANSOPRAZOLE
     Route: 048
     Dates: start: 20230830, end: 20240909
  13. URSODIOL [Concomitant]
     Active Substance: URSODIOL
     Route: 048
     Dates: start: 20230830, end: 20240909
  14. ZOVIRAX [Concomitant]
     Active Substance: ACYCLOVIR
     Route: 048
     Dates: start: 20230830, end: 20240909
  15. LEVOCETIRIZINE DIHYDROCHLORIDE [Concomitant]
     Active Substance: LEVOCETIRIZINE DIHYDROCHLORIDE
     Route: 048
     Dates: start: 20230628, end: 20240312

REACTIONS (6)
  - Thrombotic microangiopathy [Recovering/Resolving]
  - Cytomegalovirus enterocolitis [Recovered/Resolved with Sequelae]
  - Acute myeloid leukaemia [Fatal]
  - Organising pneumonia [Unknown]
  - Febrile neutropenia [Unknown]
  - Pneumocystis jirovecii pneumonia [Unknown]

NARRATIVE: CASE EVENT DATE: 20230911
